FAERS Safety Report 7588137-X (Version None)
Quarter: 2011Q2

REPORT INFORMATION
  Report Type: 
  Country: None (occurrence: None)
  Receive Date: 20110627
  Receipt Date: 20110613
  Transmission Date: 20111010
  Serious: Yes (Other)
  Sender: FDA-Public Use
  Company Number: 2010MA005045

PATIENT
  Age: 51 Year
  Sex: Female
  Weight: 86.637 kg

DRUGS (34)
  1. TOPAMAX [Concomitant]
  2. LOPRESSOR [Concomitant]
  3. PROTONIX [Concomitant]
  4. PROMETHAZINE [Concomitant]
  5. KEFLEX [Concomitant]
  6. LEXAPRO [Concomitant]
  7. RISPERDAL [Concomitant]
  8. ESKALITH [Concomitant]
  9. VANCOMYCIN [Concomitant]
  10. PROCHLORPERAZINE TAB [Concomitant]
  11. ATENOLOL [Concomitant]
  12. BENZTROPINE MESYLATE [Concomitant]
  13. SEROQUEL [Concomitant]
  14. CYCLOBENAZPRINE [Concomitant]
  15. ASPIRIN [Concomitant]
  16. OXYCONTIN [Concomitant]
  17. VALPROIC ACID [Concomitant]
  18. TRIAMTERINE [Concomitant]
  19. DIAZEPAM [Concomitant]
  20. PRILOSEC [Concomitant]
  21. MIRTAZAPINE [Concomitant]
  22. GABAPENTIN [Concomitant]
  23. LISINOPRIL [Concomitant]
  24. METOCLOPRAMIDE [Suspect]
     Dosage: 10 MG; QID; PO
     Route: 048
     Dates: start: 20031101, end: 20090501
  25. LEXAPRO [Concomitant]
  26. DEPAKOTE ER [Concomitant]
  27. LAMICTAL [Concomitant]
  28. IMDUR [Concomitant]
  29. MORPHINE [Concomitant]
  30. PAXIL [Concomitant]
  31. GEODON [Concomitant]
  32. NIFEDICAL [Concomitant]
  33. ATIVAN [Concomitant]
  34. HALOPERIDOL [Concomitant]

REACTIONS (30)
  - ASTHENIA [None]
  - DIZZINESS [None]
  - TARDIVE DYSKINESIA [None]
  - DYSKINESIA [None]
  - HYPERTENSION [None]
  - INFUSION SITE SWELLING [None]
  - INFUSION SITE HAEMORRHAGE [None]
  - NAUSEA [None]
  - HALLUCINATION, AUDITORY [None]
  - ATAXIA [None]
  - BACK PAIN [None]
  - STAPHYLOCOCCAL INFECTION [None]
  - ABDOMINAL PAIN [None]
  - VENTRICULAR DYSFUNCTION [None]
  - OESOPHAGEAL DISORDER [None]
  - EXTRAPYRAMIDAL DISORDER [None]
  - MYOCARDIAL INFARCTION [None]
  - ANXIETY [None]
  - HEADACHE [None]
  - SYNCOPE [None]
  - EMOTIONAL DISORDER [None]
  - VOMITING [None]
  - DEVICE RELATED INFECTION [None]
  - HYPOAESTHESIA FACIAL [None]
  - CEREBROVASCULAR ACCIDENT [None]
  - ECONOMIC PROBLEM [None]
  - MOVEMENT DISORDER [None]
  - DEPRESSION [None]
  - EYE PAIN [None]
  - CLUMSINESS [None]
